FAERS Safety Report 7657416-X (Version None)
Quarter: 2011Q3

REPORT INFORMATION
  Report Type: 
  Country: None (occurrence: None)
  Receive Date: 20110804
  Receipt Date: 20110620
  Transmission Date: 20111222
  Serious: No
  Sender: FDA-Public Use
  Company Number: US-ASTRAZENECA-2011SE37217

PATIENT
  Age: 13205 Day
  Sex: Female

DRUGS (11)
  1. OXYCONTIN [Concomitant]
     Dosage: BID, 120 MG DAILY
     Route: 048
  2. COMBIVENT [Concomitant]
     Dosage: 18-103 MCG/AC, DAILY
     Route: 055
  3. MEGACE [Concomitant]
     Route: 048
  4. XANAX [Concomitant]
     Dosage: TID, 0.5 MG DAILY
     Route: 048
  5. ZOLOFT [Concomitant]
     Route: 048
  6. WELLBUTRIN [Concomitant]
     Dosage: TID, 75 MG DAILY
     Route: 048
  7. SYNTHROID [Concomitant]
     Route: 048
  8. VANDETANIB [Suspect]
     Indication: THYROID CANCER
     Route: 048
     Dates: start: 20110606
  9. SANDOSTATIN LAR [Concomitant]
     Route: 050
  10. ZOMETA [Concomitant]
     Dosage: 4 MG/5 ML DAILY
     Route: 042
  11. DILAUDID [Concomitant]
     Dosage: 8 MG, DAILY, PRN
     Route: 048

REACTIONS (4)
  - VISION BLURRED [None]
  - GINGIVAL PAIN [None]
  - WHEEZING [None]
  - TRISMUS [None]
